FAERS Safety Report 25683050 (Version 1)
Quarter: 2025Q3

REPORT INFORMATION
  Report Type: Spontaneous
  Country: US (occurrence: US)
  Receive Date: 20250814
  Receipt Date: 20250814
  Transmission Date: 20251020
  Serious: No
  Sender: ORASIS PHARMACEUTICALS
  Company Number: US-ORASIS PHARMACEUTIALS-2025ORA00024

PATIENT
  Sex: Female

DRUGS (1)
  1. QLOSI [Suspect]
     Active Substance: PILOCARPINE HYDROCHLORIDE
     Dates: start: 20250415

REACTIONS (3)
  - Eye discharge [Not Recovered/Not Resolved]
  - Ear infection [Recovering/Resolving]
  - Ear discomfort [Unknown]

NARRATIVE: CASE EVENT DATE: 20250101
